FAERS Safety Report 7851687-2 (Version None)
Quarter: 2011Q4

REPORT INFORMATION
  Report Type: 
  Country: None (occurrence: None)
  Receive Date: 20111026
  Receipt Date: 20111020
  Transmission Date: 20120403
  Serious: Yes (Other)
  Sender: FDA-Public Use
  Company Number: PHHY2011BR93332

PATIENT
  Sex: Female

DRUGS (5)
  1. NORTRIPTYLINE HCL [Concomitant]
     Indication: TENSION
     Dosage: 25 MG, DAILY
  2. ATENOLOL [Concomitant]
     Indication: HYPERTENSION
     Dosage: 100 MG, HALF TABLET IN THE AFTERNOON AND HALF IN THENIGHT
  3. ADALAT - SLOW RELEASE [Concomitant]
     Indication: HYPERTENSION
     Dosage: 2 TABLETS (10 MG) DAILY
  4. OMEPRAZOLE [Concomitant]
     Indication: ABDOMINAL PAIN UPPER
     Dosage: 20 MG, , ONE TABLET WHEN HAVING STOMACH PAIN
     Dates: start: 20050101
  5. DIOVAN HCT [Suspect]
     Indication: HYPERTENSION
     Dosage: 2 DF (320/12.5 MG), DAILY

REACTIONS (3)
  - LEUKAEMIA [None]
  - BONE NEOPLASM MALIGNANT [None]
  - OEDEMA PERIPHERAL [None]
